FAERS Safety Report 8200166-1 (Version None)
Quarter: 2012Q1

REPORT INFORMATION
  Report Type: 
  Country: None (occurrence: None)
  Receive Date: 20120306
  Receipt Date: 20120221
  Transmission Date: 20120608
  Serious: Yes (Hospitalization)
  Sender: FDA-Public Use
  Company Number: AXC-2012-000080

PATIENT
  Sex: Female

DRUGS (1)
  1. NITROGLYCERIN [Suspect]
     Indication: PRODUCT USED FOR UNKNOWN INDICATION

REACTIONS (6)
  - LETHARGY [None]
  - OLIGURIA [None]
  - EPISTAXIS [None]
  - HYPERKALAEMIA [None]
  - DECREASED APPETITE [None]
  - DEHYDRATION [None]
